FAERS Safety Report 24742100 (Version 2)
Quarter: 2024Q4

REPORT INFORMATION
  Report Type: Report from Study
  Country: EG (occurrence: EG)
  Receive Date: 20241217
  Receipt Date: 20241219
  Transmission Date: 20250115
  Serious: Yes (Disabling, Other)
  Sender: NOVARTIS
  Company Number: EG-002147023-NVSC2024EG070321

PATIENT
  Age: 44 Year
  Sex: Female

DRUGS (5)
  1. MAYZENT [Suspect]
     Active Substance: SIPONIMOD
     Indication: Multiple sclerosis
     Dosage: 1 DOSAGE FORM, QD
     Route: 048
     Dates: start: 202312
  2. MAYZENT [Suspect]
     Active Substance: SIPONIMOD
     Dosage: 2 MG, QD
     Route: 048
  3. EXFORGE [Suspect]
     Active Substance: AMLODIPINE BESYLATE\VALSARTAN
     Indication: Hypertension
     Dosage: 5 MG, QD
     Route: 048
  4. ATORVASTATIN CALCIUM\EZETIMIBE [Suspect]
     Active Substance: ATORVASTATIN CALCIUM\EZETIMIBE
     Indication: Hypercholesterolaemia
     Dosage: 10 MG, QD
     Route: 048
  5. Neuroton [Concomitant]
     Indication: Nerve injury
     Dosage: 1 DOSAGE FORM, INJECTION, EVERY 3 DAYS
     Route: 065

REACTIONS (5)
  - Gait disturbance [Not Recovered/Not Resolved]
  - Multiple sclerosis relapse [Not Recovered/Not Resolved]
  - Weight decreased [Not Recovered/Not Resolved]
  - Dizziness [Unknown]
  - Feeling abnormal [Unknown]

NARRATIVE: CASE EVENT DATE: 20240319
